FAERS Safety Report 5766186-1 (Version None)
Quarter: 2008Q2

REPORT INFORMATION
  Report Type: 
  Country: None (occurrence: None)
  Receive Date: 20080609
  Receipt Date: 20080507
  Transmission Date: 20081010
  Serious: No
  Sender: FDA-Public Use
  Company Number: 002#2#2008-00388

PATIENT
  Age: 75 Year
  Sex: Female
  Weight: 53.978 kg

DRUGS (11)
  1. NEUPRO [Suspect]
     Indication: PARKINSON'S DISEASE
     Dosage: 2MG/24H,1 IN 1 D,TRANSDERMAL
     Route: 062
     Dates: start: 20071016, end: 20080411
  2. SINEMET [Concomitant]
  3. RESTORIL [Concomitant]
  4. COUMADIN [Concomitant]
  5. CARDIZEM [Concomitant]
  6. DITROPAN [Concomitant]
  7. FOSAMAX [Concomitant]
  8. LEVOTHYROXINE SODIUM [Concomitant]
  9. LEXAPRO [Concomitant]
  10. DILTIAZEM HCL [Concomitant]
  11. DIGOXIN [Concomitant]

REACTIONS (7)
  - BALANCE DISORDER [None]
  - CONDITION AGGRAVATED [None]
  - FEELING ABNORMAL [None]
  - INSOMNIA [None]
  - MOBILITY DECREASED [None]
  - PALPITATIONS [None]
  - POSTURE ABNORMAL [None]
